FAERS Safety Report 11254655 (Version 5)
Quarter: 2016Q1

REPORT INFORMATION
  Report Type: Spontaneous
  Country: FR (occurrence: FR)
  Receive Date: 20150709
  Receipt Date: 20160121
  Transmission Date: 20160525
  Serious: Yes (Hospitalization, Disabling)
  Sender: FDA-Public Use
  Company Number: FR-JNJFOC-20150700140

PATIENT
  Sex: Male

DRUGS (1)
  1. IMBRUVICA [Suspect]
     Active Substance: IBRUTINIB
     Indication: CHRONIC LYMPHOCYTIC LEUKAEMIA
     Dosage: STARTED AT THE END OF DEC-2014 OR BEGINNING OF JAN-2015
     Route: 048
     Dates: end: 20151007

REACTIONS (1)
  - Optic neuritis [Not Recovered/Not Resolved]
